FAERS Safety Report 5671273-2 (Version None)
Quarter: 2008Q1

REPORT INFORMATION
  Report Type: 
  Country: None (occurrence: None)
  Receive Date: 20080313
  Receipt Date: 20080303
  Transmission Date: 20080703
  Serious: Yes (Hospitalization)
  Sender: FDA-Public Use
  Company Number: 024873

PATIENT
  Age: 54 Year
  Sex: Female

DRUGS (7)
  1. METHYLPREDNISOLONE [Suspect]
     Indication: MULTIPLE SCLEROSIS
     Dosage: SEE IMAGE
     Route: 042
  2. METHYLPREDNISOLONE [Suspect]
     Indication: NEUROLOGICAL SYMPTOM
     Dosage: SEE IMAGE
     Route: 042
  3. METHYLPREDNISOLONE [Suspect]
     Indication: MULTIPLE SCLEROSIS
     Dosage: SEE IMAGE
     Route: 042
  4. METHYLPREDNISOLONE [Suspect]
     Indication: NEUROLOGICAL SYMPTOM
     Dosage: SEE IMAGE
     Route: 042
  5. METHYLPREDNISOLONE [Suspect]
     Indication: MULTIPLE SCLEROSIS
     Dosage: SEE IMAGE
     Route: 042
  6. METHYLPREDNISOLONE [Suspect]
     Indication: NEUROLOGICAL SYMPTOM
     Dosage: SEE IMAGE
     Route: 042
  7. LEVOTHYROXINE SODIUM [Concomitant]

REACTIONS (8)
  - FATIGUE [None]
  - HEPATIC NECROSIS [None]
  - IDIOSYNCRATIC DRUG REACTION [None]
  - INFLAMMATION [None]
  - INTERNATIONAL NORMALISED RATIO INCREASED [None]
  - NAUSEA [None]
  - NEUROLOGICAL SYMPTOM [None]
  - VOMITING [None]
